FAERS Safety Report 22048971 (Version 1)
Quarter: 2023Q1

REPORT INFORMATION
  Report Type: Report from Study
  Country: DO (occurrence: DO)
  Receive Date: 20230301
  Receipt Date: 20230301
  Transmission Date: 20230418
  Serious: Yes (Other)
  Sender: FDA-Public Use
  Company Number: DO-ABBVIE-4323419

PATIENT
  Age: 70 Year
  Sex: Female
  Weight: 63.502 kg

DRUGS (8)
  1. HUMIRA [Suspect]
     Active Substance: ADALIMUMAB
     Indication: Uveitis
     Route: 058
     Dates: start: 20190814, end: 202211
  2. HUMIRA [Suspect]
     Active Substance: ADALIMUMAB
     Route: 058
     Dates: start: 20221228
  3. Neumocor plus [Concomitant]
     Indication: Respiratory failure
     Route: 048
     Dates: start: 202211, end: 202212
  4. CANDESARTAN [Concomitant]
     Active Substance: CANDESARTAN
     Indication: Hypertension
     Dosage: 1 TABLET
     Route: 048
     Dates: start: 1982
  5. METHOTREXATE [Concomitant]
     Active Substance: METHOTREXATE
     Indication: Polychondritis
     Dosage: FORM STRENGTH- 40 MG
     Route: 048
     Dates: start: 2010
  6. PREDNISONE [Concomitant]
     Active Substance: PREDNISONE
     Indication: Polychondritis
     Dosage: FORM STRENGTH- 5 MG
     Route: 048
     Dates: start: 2010
  7. VERAPAMIL [Concomitant]
     Active Substance: VERAPAMIL HYDROCHLORIDE
     Indication: Hypertension
     Dosage: 1 TABLET?FREQUENCY TEXT: IN THE MORNING?FORM STRENGTH- 40 MG
     Route: 048
     Dates: start: 1982
  8. VERAPAMIL [Concomitant]
     Active Substance: VERAPAMIL HYDROCHLORIDE
     Indication: Hypertension
     Dosage: FREQUENCY TEXT: IAT NIGHT?FORM STRENGTH- 120 MG

REACTIONS (3)
  - Respiratory failure [Recovered/Resolved]
  - Oxygen saturation decreased [Recovered/Resolved]
  - Respiratory distress [Recovered/Resolved]

NARRATIVE: CASE EVENT DATE: 20221101
